FAERS Safety Report 9155990 (Version 1)
Quarter: 2013Q1

REPORT INFORMATION
  Report Type: Spontaneous
  Country: DE (occurrence: DE)
  Receive Date: 20130311
  Receipt Date: 20130311
  Transmission Date: 20140127
  Serious: Yes (Other)
  Sender: FDA-Public Use
  Company Number: DE-UCBSA-080163

PATIENT
  Age: 54 Year
  Sex: Female

DRUGS (1)
  1. NEUPRO [Suspect]
     Indication: PARKINSON^S DISEASE
     Route: 062
     Dates: start: 20120227

REACTIONS (3)
  - Conjunctivitis [Recovered/Resolved]
  - Erysipelas [Recovered/Resolved]
  - Influenza like illness [Recovered/Resolved]
